FAERS Safety Report 4567281-5 (Version None)
Quarter: 2005Q1

REPORT INFORMATION
  Report Type: 
  Country: None (occurrence: None)
  Receive Date: 20050201
  Receipt Date: 20050126
  Transmission Date: 20050727
  Serious: Yes (Hospitalization)
  Sender: FDA-Public Use
  Company Number: US-BRISTOL-MYERS SQUIBB COMPANY-12838710

PATIENT
  Age: 49 Year
  Sex: Female

DRUGS (6)
  1. PACLITAXEL [Suspect]
     Route: 042
     Dates: start: 20041130
  2. NEULASTA [Suspect]
     Indication: CHEMOTHERAPY
     Route: 058
     Dates: start: 20041006, end: 20041229
  3. CYCLOPHOSPHAMIDE [Concomitant]
     Dates: start: 20041005, end: 20041116
  4. ADRIAMYCIN PFS [Concomitant]
     Dates: start: 20041005, end: 20041116
  5. PROCRIT [Concomitant]
     Dates: start: 20041116
  6. OXYCODONE HCL [Concomitant]

REACTIONS (4)
  - ARTHRALGIA [None]
  - BACK PAIN [None]
  - CHEST WALL PAIN [None]
  - PAIN IN EXTREMITY [None]
